FAERS Safety Report 19710939 (Version 1)
Quarter: 2021Q3

REPORT INFORMATION
  Report Type: Spontaneous
  Country: FR (occurrence: FR)
  Receive Date: 20210817
  Receipt Date: 20210817
  Transmission Date: 20211014
  Serious: Yes (Hospitalization)
  Sender: FDA-Public Use
  Company Number: FR-MYLANLABS-2021M1051345

PATIENT
  Age: 61 Year
  Sex: Female

DRUGS (3)
  1. XARELTO [Suspect]
     Active Substance: RIVAROXABAN
     Indication: SUSPECTED COVID-19
     Dosage: 15 MILLIGRAM
     Route: 048
     Dates: start: 20210104, end: 20210109
  2. AZITHROMYCINE [Concomitant]
     Active Substance: AZITHROMYCIN
     Indication: SUSPECTED COVID-19
     Dosage: 250 MILLIGRAM
     Route: 048
     Dates: start: 20210104, end: 20210109
  3. PREDNISONE. [Suspect]
     Active Substance: PREDNISONE
     Indication: SUSPECTED COVID-19
     Dosage: UNK
     Route: 048
     Dates: start: 20210104, end: 20210109

REACTIONS (4)
  - Anaemia [Recovering/Resolving]
  - Gastric ulcer haemorrhage [Recovering/Resolving]
  - Melaena [Recovered/Resolved]
  - Thrombocytosis [Recovering/Resolving]

NARRATIVE: CASE EVENT DATE: 20210108
